FAERS Safety Report 7784297-6 (Version None)
Quarter: 2011Q3

REPORT INFORMATION
  Report Type: 
  Country: None (occurrence: None)
  Receive Date: 20110928
  Receipt Date: 20110921
  Transmission Date: 20111222
  Serious: Yes (Hospitalization)
  Sender: FDA-Public Use
  Company Number: US-ELI_LILLY_AND_COMPANY-US201109006820

PATIENT
  Age: 55 Year
  Sex: Female
  Weight: 88.435 kg

DRUGS (6)
  1. NITRO                              /00003201/ [Concomitant]
  2. FLEXERIL [Concomitant]
  3. PLAVIX [Concomitant]
  4. METOPROLOL TARTRATE [Concomitant]
  5. ASPIRIN [Concomitant]
     Dosage: 81 MG, UNKNOWN
  6. EFFIENT [Suspect]
     Indication: STENT PLACEMENT
     Dosage: UNK
     Dates: end: 20110901

REACTIONS (2)
  - RASH [None]
  - CHEST PAIN [None]
